FAERS Safety Report 6690967-3 (Version None)
Quarter: 2010Q2

REPORT INFORMATION
  Report Type: 
  Country: None (occurrence: None)
  Receive Date: 20100421
  Receipt Date: 20100205
  Transmission Date: 20101027
  Serious: No
  Sender: FDA-Public Use
  Company Number: US-ALLERGAN-0917162US

PATIENT
  Age: 66 Year
  Sex: Female

DRUGS (4)
  1. LATISSE [Suspect]
     Indication: GROWTH OF EYELASHES
     Dosage: 1 GTT, QHS
     Route: 061
     Dates: start: 20090701, end: 20091101
  2. LATISSE [Suspect]
     Dosage: UNK
     Dates: start: 20091101
  3. ARIMIDEX [Concomitant]
     Indication: BREAST CANCER
     Dosage: UNK
     Dates: start: 20081001
  4. VITAMINS [Concomitant]

REACTIONS (2)
  - DRUG ADMINISTRATION ERROR [None]
  - MADAROSIS [None]
